FAERS Safety Report 9122201 (Version 1)
Quarter: 2013Q1

REPORT INFORMATION
  Report Type: Spontaneous
  Country: PR (occurrence: None)
  Receive Date: 20130125
  Receipt Date: 20130125
  Transmission Date: 20140127
  Serious: No
  Sender: FDA-Public Use
  Company Number: 2012PR-004408

PATIENT
  Age: 49 Year
  Sex: Male

DRUGS (9)
  1. OMONTYS (PEGINESATIDE) SOLUTION FOR INJECTION [Suspect]
     Indication: NEPHROGENIC ANAEMIA
     Route: 042
     Dates: start: 20120831, end: 20120831
  2. EPOGEN (EPOETIN ALFA) [Concomitant]
  3. ZEMPLAR (PARICALCITOL) [Concomitant]
  4. LIQUACEL [Concomitant]
  5. HEPARIN (HEPARIN) [Concomitant]
  6. CARDURA (DOXAZOSIN MESILATE) [Concomitant]
  7. LOSARTAN (LOSARTAN) [Concomitant]
  8. ASPIRIN (ACETYLSALICYLIC ACID) [Concomitant]
  9. METOPROLOL (METOPROLOL) [Concomitant]

REACTIONS (4)
  - Cyanosis [None]
  - Loss of consciousness [None]
  - Respiratory distress [None]
  - Urinary incontinence [None]
